FAERS Safety Report 8286344-4 (Version None)
Quarter: 2012Q2

REPORT INFORMATION
  Report Type: 
  Country: None (occurrence: None)
  Receive Date: 20120416
  Receipt Date: 20120411
  Transmission Date: 20120825
  Serious: No
  Sender: FDA-Public Use
  Company Number: US-PFIZER INC-2012091394

PATIENT
  Sex: Female
  Weight: 81.633 kg

DRUGS (6)
  1. DETROL LA [Suspect]
     Dosage: 4 MG, DAILY
  2. SIMVASTATIN [Concomitant]
     Indication: BLOOD CHOLESTEROL ABNORMAL
     Dosage: UNK
  3. TRAZODONE [Concomitant]
     Dosage: 150 MG, DAILY
     Dates: start: 20120201
  4. EFFEXOR [Concomitant]
     Indication: DEPRESSION
     Dosage: 150 MG, DAILY
     Dates: start: 20120101
  5. DETROL LA [Suspect]
     Indication: URGE INCONTINENCE
     Dosage: 2MG, DAILY
     Dates: start: 19980101
  6. LORAZEPAM [Concomitant]
     Indication: DEPRESSION
     Dosage: 0.5 MG, 2X/DAY

REACTIONS (2)
  - DRUG INEFFECTIVE [None]
  - URINARY INCONTINENCE [None]
